FAERS Safety Report 9172469 (Version 1)
Quarter: 2013Q1

REPORT INFORMATION
  Report Type: Spontaneous
  Country: FR (occurrence: FR)
  Receive Date: 20130319
  Receipt Date: 20130319
  Transmission Date: 20140127
  Serious: Yes (Death, Life-Threatening)
  Sender: FDA-Public Use
  Company Number: FR-GILEAD-2013-0071659

PATIENT
  Age: 47 Year
  Sex: Male

DRUGS (4)
  1. TRUVADA [Suspect]
     Indication: HIV INFECTION
     Dosage: 1 DF, QD
     Route: 048
     Dates: end: 20130118
  2. VFEND [Suspect]
     Indication: PRODUCT USED FOR UNKNOWN INDICATION
     Dosage: 200 MG, BID
     Route: 042
     Dates: start: 20130109, end: 20130117
  3. VFEND [Suspect]
     Dosage: 600 MG, BID
     Dates: start: 20130109, end: 20130109
  4. PREZISTA [Concomitant]

REACTIONS (5)
  - Drug level above therapeutic [Recovered/Resolved]
  - Hepatic function abnormal [Fatal]
  - Renal failure acute [Fatal]
  - Hepatic failure [Fatal]
  - Hepatorenal syndrome [Fatal]
